FAERS Safety Report 4634698-X (Version None)
Quarter: 2005Q2

REPORT INFORMATION
  Report Type: 
  Country: None (occurrence: None)
  Receive Date: 20050413
  Receipt Date: 20050413
  Transmission Date: 20051028
  Serious: Yes (Life-Threatening, Hospitalization, Other)
  Sender: FDA-Public Use
  Company Number: None

PATIENT

DRUGS (2)
  1. OXYCONTIN [Suspect]
     Indication: BACK PAIN
     Dosage: EVERYDAY MORE THE 1
  2. OXYCONTIN [Suspect]
     Indication: STRESS
     Dosage: EVERYDAY MORE THE 1

REACTIONS (3)
  - ABNORMAL BEHAVIOUR [None]
  - DRUG DEPENDENCE [None]
  - THERMAL BURN [None]
